FAERS Safety Report 8119850-3 (Version None)
Quarter: 2012Q1

REPORT INFORMATION
  Report Type: 
  Country: None (occurrence: None)
  Receive Date: 20120206
  Receipt Date: 20120206
  Transmission Date: 20120608
  Serious: Yes (Other)
  Sender: FDA-Public Use
  Company Number: None

PATIENT
  Age: 74 Year
  Sex: Male
  Weight: 104.3273 kg

DRUGS (2)
  1. NOVOLIN 70/30 [Suspect]
     Indication: DIABETES MELLITUS
     Dosage: 39 UNITS/AM; 15 UNITS BEFORE SUPPER 1 BEFORE BKFST., 1 BEFORE SUPPER
     Dates: start: 20100901
  2. FUROSEMIDE [Suspect]
     Dosage: WAS TOLD TO BE 1X(40 MG) DAILY/1 TIME DISCONTINUED USE  - URGENCY OF URINE/FLOODED
     Dates: start: 20100801, end: 20100901

REACTIONS (2)
  - MICTURITION URGENCY [None]
  - URINARY INCONTINENCE [None]
